FAERS Safety Report 7088265-1 (Version None)
Quarter: 2010Q4

REPORT INFORMATION
  Report Type: 
  Country: None (occurrence: None)
  Receive Date: 20101108
  Receipt Date: 20101019
  Transmission Date: 20110411
  Serious: Yes (Hospitalization, Other)
  Sender: FDA-Public Use
  Company Number: US-BAYER-201033893NA

PATIENT
  Age: 24 Year
  Sex: Female
  Weight: 63 kg

DRUGS (12)
  1. YAZ [Suspect]
     Indication: PRODUCT USED FOR UNKNOWN INDICATION
     Route: 048
     Dates: start: 20070101, end: 20080101
  2. YASMIN [Suspect]
     Indication: PRODUCT USED FOR UNKNOWN INDICATION
     Route: 048
     Dates: start: 20070101, end: 20080101
  3. OCELLA [Suspect]
     Indication: PRODUCT USED FOR UNKNOWN INDICATION
     Route: 048
     Dates: start: 20070101, end: 20080101
  4. CEPHALEXIN [Concomitant]
     Dosage: TOTAL DAILY DOSE: 2000 MG  UNIT DOSE: 500 MG
     Route: 048
     Dates: start: 20071024
  5. METOCLOPRAMIDE [Concomitant]
     Dosage: TOTAL DAILY DOSE: 40 MG  UNIT DOSE: 10 MG
     Route: 048
     Dates: start: 20071024
  6. HYDROCODONE BITARTRATE + ACETAMINOPHEN [Concomitant]
     Dosage: 5MG/500MG -  1 OR 2 TABS Q4-6HR PRN
     Route: 048
     Dates: start: 20071024
  7. CEPHALEXIN [Concomitant]
     Dosage: TOTAL DAILY DOSE: 500 MG  UNIT DOSE: 500 MG
     Route: 048
     Dates: start: 20071101
  8. PROMETHEGAN [Concomitant]
     Dosage: TOTAL DAILY DOSE: 75 MG  UNIT DOSE: 25 MG
     Route: 054
     Dates: start: 20071101
  9. AZITHROMYCIN [Concomitant]
     Dosage: UNIT DOSE: 500 MG
     Route: 048
     Dates: start: 20071207
  10. SULFAMETHOXAZOLE AND TRIMETHOPRIM [Concomitant]
     Dosage: 800/160 TABS
     Route: 048
     Dates: start: 20080111
  11. PERMETHRIN [Concomitant]
     Route: 061
     Dates: start: 20080111
  12. PERMETHRIN [Concomitant]
     Dosage: TOTAL DAILY DOSE: 100 MG  UNIT DOSE: 500 MG
     Route: 048
     Dates: start: 20100111, end: 20100118

REACTIONS (9)
  - ABDOMINAL PAIN [None]
  - ABDOMINAL TENDERNESS [None]
  - BILIARY COLIC [None]
  - CHOLECYSTITIS ACUTE [None]
  - CHOLELITHIASIS [None]
  - INJURY [None]
  - NAUSEA [None]
  - PREGNANCY ON CONTRACEPTIVE [None]
  - VOMITING [None]
